FAERS Safety Report 6078591-7 (Version None)
Quarter: 2009Q1

REPORT INFORMATION
  Report Type: 
  Country: None (occurrence: None)
  Receive Date: 20090130
  Receipt Date: 20080220
  Transmission Date: 20090719
  Serious: Yes (Life-Threatening)
  Sender: FDA-Public Use
  Company Number: 8030049

PATIENT
  Age: 10 Year
  Sex: Male

DRUGS (1)
  1. KEPPRA [Suspect]
     Indication: CONVULSION

REACTIONS (4)
  - AGGRESSION [None]
  - CONVULSION [None]
  - DEPRESSION [None]
  - SUICIDE ATTEMPT [None]
